FAERS Safety Report 4548426-X (Version None)
Quarter: 2004Q4

REPORT INFORMATION
  Report Type: 
  Country: None (occurrence: None)
  Receive Date: 20041227
  Receipt Date: 20041108
  Transmission Date: 20050328
  Serious: Yes (Hospitalization)
  Sender: FDA-Public Use
  Company Number: 04P-163-0277653-00

PATIENT
  Age: 61 Year
  Sex: Female
  Weight: 67.586 kg

DRUGS (4)
  1. HUMIRA [Suspect]
     Indication: RHEUMATOID ARTHRITIS
     Dosage: 40 MG , 1 IN 2 W, SUBCUTANEOUS
     Route: 058
     Dates: start: 20030801, end: 20040901
  2. RALOXIFENE HCL [Concomitant]
  3. NAPROXEN SODUM [Concomitant]
  4. IBUPROFEN [Concomitant]

REACTIONS (1)
  - OSTEOMYELITIS [None]
